FAERS Safety Report 11982335 (Version 1)
Quarter: 2016Q1

REPORT INFORMATION
  Report Type: Spontaneous
  Country: US (occurrence: None)
  Receive Date: 20160129
  Receipt Date: 20160129
  Transmission Date: 20160526
  Serious: No
  Sender: FDA-Public Use
  Company Number: None

PATIENT
  Age: 75 Year
  Sex: Female
  Weight: 63.5 kg

DRUGS (1)
  1. ALENDRONATE SODIUM 70 MG [Suspect]
     Active Substance: ALENDRONATE SODIUM
     Indication: BONE LOSS
     Dosage: 1 TABLET
     Route: 048

REACTIONS (4)
  - Arthralgia [None]
  - Groin pain [None]
  - Dysstasia [None]
  - Pain in extremity [None]
